FAERS Safety Report 24376444 (Version 3)
Quarter: 2024Q4

REPORT INFORMATION
  Report Type: Spontaneous
  Country: US (occurrence: US)
  Receive Date: 20240930
  Receipt Date: 20241107
  Transmission Date: 20250115
  Serious: No
  Sender: APOTEX
  Company Number: US-APOTEX-2024AP010433

PATIENT
  Sex: Female

DRUGS (3)
  1. DESMOPRESSIN ACETATE [Suspect]
     Active Substance: DESMOPRESSIN ACETATE
     Indication: Diabetes insipidus
     Dosage: 1 DOSAGE FORM
     Route: 045
  2. DESMOPRESSIN ACETATE [Suspect]
     Active Substance: DESMOPRESSIN ACETATE
     Dosage: UNK
     Route: 065
     Dates: start: 20240821
  3. DESMOPRESSIN ACETATE [Suspect]
     Active Substance: DESMOPRESSIN ACETATE
     Dosage: UNK
     Route: 065
     Dates: start: 20240902

REACTIONS (7)
  - Product packaging quantity issue [Unknown]
  - Product delivery mechanism issue [Unknown]
  - Product substitution issue [Unknown]
  - Product dispensing error [Unknown]
  - Device colour issue [Unknown]
  - Physical product label issue [Unknown]
  - Therapeutic product effect prolonged [Unknown]
